FAERS Safety Report 4619043-8 (Version None)
Quarter: 2005Q1

REPORT INFORMATION
  Report Type: 
  Country: None (occurrence: None)
  Receive Date: 20050325
  Receipt Date: 20050316
  Transmission Date: 20050727
  Serious: Yes (Life-Threatening)
  Sender: FDA-Public Use
  Company Number: FR-BRISTOL-MYERS SQUIBB COMPANY-12901526

PATIENT
  Age: 48 Year
  Sex: Male
  Weight: 65 kg

DRUGS (2)
  1. TAXOL [Suspect]
     Indication: TESTIS CANCER
     Route: 042
  2. GEMZAR [Suspect]
     Indication: TESTIS CANCER
     Route: 042
     Dates: start: 20050104, end: 20050111

REACTIONS (1)
  - HAEMOLYTIC URAEMIC SYNDROME [None]
